FAERS Safety Report 11214836 (Version 1)
Quarter: 2015Q2

REPORT INFORMATION
  Report Type: Spontaneous
  Country: US (occurrence: US)
  Receive Date: 20150624
  Receipt Date: 20150624
  Transmission Date: 20150821
  Serious: No
  Sender: FDA-Public Use
  Company Number: US-BIOGENIDEC-2015BI084515

PATIENT
  Age: 26 Year
  Sex: Female
  Weight: 105 kg

DRUGS (4)
  1. TYSABRI [Suspect]
     Active Substance: NATALIZUMAB
     Indication: MULTIPLE SCLEROSIS
     Route: 042
     Dates: start: 20140918
  2. LYRICA [Concomitant]
     Active Substance: PREGABALIN
     Route: 048
  3. BACLOFEN. [Concomitant]
     Active Substance: BACLOFEN
     Route: 048
     Dates: start: 20130423
  4. FLORICET [Concomitant]
     Indication: PAIN
     Dates: start: 20120809

REACTIONS (16)
  - Seasonal allergy [Unknown]
  - Fatigue [Unknown]
  - Insomnia [Unknown]
  - Muscle spasms [Unknown]
  - Back pain [Unknown]
  - Pollakiuria [Unknown]
  - Arthralgia [Unknown]
  - Multiple sclerosis [Unknown]
  - Pain [Unknown]
  - Blood glucose increased [Unknown]
  - Lymphocyte count increased [Unknown]
  - Drug abuse [Unknown]
  - Rash [Unknown]
  - Vitamin D deficiency [Unknown]
  - Night sweats [Unknown]
  - White blood cell count increased [Unknown]

NARRATIVE: CASE EVENT DATE: 20150316
